FAERS Safety Report 4415236-3 (Version None)
Quarter: 2004Q3

REPORT INFORMATION
  Report Type: 
  Country: None (occurrence: None)
  Receive Date: 20040804
  Receipt Date: 20040706
  Transmission Date: 20050211
  Serious: Yes (Hospitalization)
  Sender: FDA-Public Use
  Company Number: JP-GLAXOSMITHKLINE-B0338383A

PATIENT
  Age: 35 Year
  Sex: Male
  Weight: 48 kg

DRUGS (7)
  1. VALTREX [Suspect]
     Indication: HERPES ZOSTER
     Dosage: 1000MG PER DAY
     Route: 048
     Dates: start: 20040702, end: 20040704
  2. TICLOPIDINE HCL [Concomitant]
     Indication: SHUNT STENOSIS
     Dosage: 100MG PER DAY
     Route: 048
  3. CARDENALIN [Concomitant]
     Indication: HYPERTENSION
     Dosage: 2MG PER DAY
     Route: 048
  4. CALTAN [Concomitant]
     Dosage: 6G PER DAY
     Route: 048
  5. TENORMIN [Concomitant]
     Indication: HYPERTENSION
     Dosage: 25MG PER DAY
     Route: 048
  6. DIOVAN [Concomitant]
     Dosage: 80MG PER DAY
     Route: 048
  7. VIDARABINE [Concomitant]
     Dates: start: 20040630

REACTIONS (4)
  - DIZZINESS [None]
  - ENCEPHALOPATHY [None]
  - MALAISE [None]
  - SPEECH DISORDER [None]
